FAERS Safety Report 14377166 (Version 1)
Quarter: 2018Q1

REPORT INFORMATION
  Report Type: Spontaneous
  Country: US (occurrence: US)
  Receive Date: 20180111
  Receipt Date: 20180111
  Transmission Date: 20180509
  Serious: No
  Sender: FDA-Public Use
  Company Number: US-DRREDDYS-USA/USA/17/0093371

PATIENT
  Age: 52 Day
  Sex: Female

DRUGS (1)
  1. NICOTINE. [Suspect]
     Active Substance: NICOTINE
     Indication: SMOKING CESSATION THERAPY
     Route: 065
     Dates: start: 20170903

REACTIONS (4)
  - Nicotine dependence [Unknown]
  - Treatment noncompliance [Unknown]
  - Product quality issue [Unknown]
  - Overdose [Unknown]
